FAERS Safety Report 24249341 (Version 1)
Quarter: 2024Q3

REPORT INFORMATION
  Report Type: Spontaneous
  Country: CA (occurrence: CA)
  Receive Date: 20240826
  Receipt Date: 20240826
  Transmission Date: 20241017
  Serious: Yes (Other)
  Sender: BAXTER
  Company Number: CA-BAXTER-2024BAX023559

PATIENT
  Age: 9 Year
  Sex: Male

DRUGS (16)
  1. CYCLOPHOSPHAMIDE [Suspect]
     Active Substance: CYCLOPHOSPHAMIDE
     Indication: Acute myeloid leukaemia
     Dosage: UNK, DOSAGE FORM: NOT SPECIFIED
     Route: 065
  2. BUSULFAN [Suspect]
     Active Substance: BUSULFAN
     Indication: Acute myeloid leukaemia
     Dosage: UNK, DOSAGE FORM: NOT SPECIFIED
     Route: 065
  3. CYTARABINE [Suspect]
     Active Substance: CYTARABINE
     Indication: Acute myeloid leukaemia
     Dosage: 100.0 MG/M2, INJECTION, DOSAGE FORM: NOT SPECIFIE
     Route: 065
  4. CYTARABINE [Suspect]
     Active Substance: CYTARABINE
     Dosage: 2000.0 MG/M2, 1 EVERY 1 DAYS, INJECTION, DOSAGE FORM: NOT SPECIFIED
     Route: 037
  5. CYTARABINE [Suspect]
     Active Substance: CYTARABINE
     Dosage: 100.0 MG/M2, INJECTION, DOSAGE FORM: NOT SPECIFIED
     Route: 065
  6. DAUNORUBICIN HYDROCHLORIDE [Suspect]
     Active Substance: DAUNORUBICIN HYDROCHLORIDE
     Indication: Acute myeloid leukaemia
     Dosage: UNK, DOSAGE FORM: POWDER FOR SOLUTION INTRAVENOUS
     Route: 065
  7. DAUNORUBICIN HYDROCHLORIDE [Suspect]
     Active Substance: DAUNORUBICIN HYDROCHLORIDE
     Dosage: UNK, DOSAGE FORM: POWDER FOR SOLUTION INTRAVENOUS
     Route: 065
  8. ETOPOSIDE [Suspect]
     Active Substance: ETOPOSIDE
     Indication: Acute myeloid leukaemia
     Dosage: DOSE: 100, DOSAGE FORM: NOT SPECIFIED
     Route: 065
  9. ETOPOSIDE [Suspect]
     Active Substance: ETOPOSIDE
     Dosage: DOSE: 100 MG/M2, DOSAGE FORM: NOT SPECIFIED
     Route: 065
  10. FILGRASTIM [Suspect]
     Active Substance: FILGRASTIM
     Indication: Acute myeloid leukaemia
     Dosage: UNK
     Route: 065
  11. FLUDARABINE [Suspect]
     Active Substance: FLUDARABINE PHOSPHATE
     Indication: Acute myeloid leukaemia
     Dosage: 30.0 MG/M2, 1 EVERY 1 DAY, DOSAGE FORM: NOT SPECIFIED
     Route: 065
  12. NEXAVAR [Suspect]
     Active Substance: SORAFENIB
     Indication: Acute myeloid leukaemia
     Dosage: 200.0 MG/M2, 2 EVERY 1 DAYS
     Route: 065
  13. NEXAVAR [Suspect]
     Active Substance: SORAFENIB
     Dosage: UNK
     Route: 065
  14. RYDAPT [Suspect]
     Active Substance: MIDOSTAURIN
     Indication: Acute myeloid leukaemia
     Dosage: 30.0 MG/M2
     Route: 048
  15. RYDAPT [Suspect]
     Active Substance: MIDOSTAURIN
     Dosage: 15.0 MG/M2, 2 EVERY 1 DAYS
     Route: 048
  16. THYMOGLOBULIN [Suspect]
     Active Substance: LAPINE T-LYMPHOCYTE IMMUNE GLOBULIN
     Indication: Acute myeloid leukaemia
     Dosage: UNK, DOSAGE FORM: POWDER FOR SOLUTION INTRAVENOUS
     Route: 042

REACTIONS (8)
  - Lymphadenopathy [Unknown]
  - Drug intolerance [Unknown]
  - Skin toxicity [Unknown]
  - Malignant neoplasm progression [Unknown]
  - Acute myeloid leukaemia recurrent [Unknown]
  - Bone marrow failure [Unknown]
  - Myelosuppression [Unknown]
  - Pancytopenia [Unknown]
